FAERS Safety Report 16442986 (Version 11)
Quarter: 2020Q3

REPORT INFORMATION
  Report Type: Spontaneous
  Country: DE (occurrence: DE)
  Receive Date: 20190617
  Receipt Date: 20200813
  Transmission Date: 20201102
  Serious: Yes (Life-Threatening, Hospitalization, Other)
  Sender: FDA-Public Use
  Company Number: PHHY2019DE138170

PATIENT
  Age: 41 Year
  Sex: Male

DRUGS (7)
  1. PHENPROCOUMON [Interacting]
     Active Substance: PHENPROCOUMON
     Indication: MYOCARDIAL ISCHAEMIA
     Dosage: UNK
     Route: 065
  2. PHENPROCOUMON [Interacting]
     Active Substance: PHENPROCOUMON
     Indication: ATRIAL FIBRILLATION
  3. METAMIZOLE SODIUM [Suspect]
     Active Substance: METAMIZOLE SODIUM
     Indication: TOOTH EXTRACTION
     Dosage: SELF?MEDICATION
     Route: 065
  4. METAMIZOLE SODIUM [Suspect]
     Active Substance: METAMIZOLE SODIUM
     Indication: TOOTHACHE
     Dosage: UNKNOWN AMOUNT
     Route: 048
  5. ACETYLSALICYLIC ACID [Suspect]
     Active Substance: ASPIRIN
     Indication: TOOTHACHE
     Dosage: UNK
     Route: 048
  6. PHENPROCOUMON [Interacting]
     Active Substance: PHENPROCOUMON
     Indication: CORONARY ARTERY DISEASE
  7. ACETYLSALICYLIC ACID [Interacting]
     Active Substance: ASPIRIN
     Indication: TOOTH EXTRACTION
     Dosage: SELF?MEDICATION
     Route: 065

REACTIONS (12)
  - Coagulation factor decreased [Unknown]
  - Tongue haematoma [Recovering/Resolving]
  - Post procedural haemorrhage [Recovered/Resolved]
  - Coagulopathy [Recovering/Resolving]
  - Upper airway obstruction [Unknown]
  - Tooth socket haemorrhage [Unknown]
  - Pharyngeal haematoma [Recovering/Resolving]
  - Haemorrhage [Recovering/Resolving]
  - Overdose [Recovering/Resolving]
  - Drug level above therapeutic [Unknown]
  - Post procedural haematoma [Recovering/Resolving]
  - Labelled drug-drug interaction medication error [Unknown]
